FAERS Safety Report 10260822 (Version 3)
Quarter: 2014Q3

REPORT INFORMATION
  Report Type: Report from Study
  Country: ES (occurrence: ES)
  Receive Date: 20140626
  Receipt Date: 20140710
  Transmission Date: 20150326
  Serious: Yes (Hospitalization, Other)
  Sender: FDA-Public Use
  Company Number: ES-BRISTOL-MYERS SQUIBB COMPANY-20808010

PATIENT
  Age: 54 Year
  Sex: Female
  Weight: 70 kg

DRUGS (5)
  1. LAMIVUDINE. [Suspect]
     Active Substance: LAMIVUDINE
     Indication: HIV INFECTION
     Route: 048
     Dates: start: 20130111, end: 20140613
  2. ATAZANAVIR [Suspect]
     Active Substance: ATAZANAVIR
     Indication: HIV INFECTION
     Route: 048
     Dates: start: 20130111, end: 20140613
  3. HIDROFEROL [Concomitant]
     Active Substance: CALCIFEDIOL
     Indication: OSTEOPOROSIS
     Dates: start: 20120502
  4. PARACETAMOL [Concomitant]
     Active Substance: ACETAMINOPHEN
     Dosage: ORAL IF NEEDED 3 G FROM MAY 16TH, 2014 TO JUNE 5TH, 2014
     Route: 048
     Dates: start: 20140516, end: 20140605
  5. RITONAVIR [Suspect]
     Active Substance: RITONAVIR
     Indication: HIV INFECTION
     Route: 048
     Dates: start: 20130111, end: 20140613

REACTIONS (9)
  - Cognitive disorder [Recovered/Resolved]
  - Anaemia [Unknown]
  - Hodgkin^s disease [Unknown]
  - Bradyphrenia [Recovered/Resolved]
  - Asthenia [Unknown]
  - Decreased appetite [Unknown]
  - Headache [Unknown]
  - Pyrexia [Unknown]
  - Weight decreased [Unknown]

NARRATIVE: CASE EVENT DATE: 20140516
